FAERS Safety Report 15752596 (Version 1)
Quarter: 2018Q4

REPORT INFORMATION
  Report Type: Spontaneous
  Country: US (occurrence: US)
  Receive Date: 20181221
  Receipt Date: 20181221
  Transmission Date: 20190205
  Serious: Yes (Hospitalization)
  Sender: FDA-Public Use
  Company Number: US-VIFOR (INTERNATIONAL) INC.-VIT-2018-12405

PATIENT
  Sex: Male

DRUGS (9)
  1. LOSARTAN. [Concomitant]
     Active Substance: LOSARTAN
  2. AMLODIPINE [Concomitant]
     Active Substance: AMLODIPINE BESYLATE
  3. ALLOPURINOL. [Concomitant]
     Active Substance: ALLOPURINOL
  4. VELTASSA [Suspect]
     Active Substance: PATIROMER
     Indication: HYPERKALAEMIA
     Route: 048
     Dates: start: 20171113
  5. CALCITRIOL. [Concomitant]
     Active Substance: CALCITRIOL
  6. ATORVASTATIN [Concomitant]
     Active Substance: ATORVASTATIN
  7. BUMETANIDE. [Concomitant]
     Active Substance: BUMETANIDE
  8. CARVEDILOL. [Concomitant]
     Active Substance: CARVEDILOL
  9. PENTOXIFYLLINE. [Concomitant]
     Active Substance: PENTOXIFYLLINE

REACTIONS (2)
  - Product dose omission [Unknown]
  - Surgery [Unknown]
